FAERS Safety Report 17077514 (Version 1)
Quarter: 2019Q4

REPORT INFORMATION
  Report Type: Report from Study
  Country: US (occurrence: US)
  Receive Date: 20191126
  Receipt Date: 20191126
  Transmission Date: 20200122
  Serious: Yes (Hospitalization, Disabling)
  Sender: FDA-Public Use
  Company Number: US-ACTELION-A-US2018-174254

PATIENT
  Age: 73 Year
  Sex: Female

DRUGS (1)
  1. OPSUMIT [Suspect]
     Active Substance: MACITENTAN
     Indication: PULMONARY ARTERIAL HYPERTENSION
     Dosage: 10 MG, QD
     Route: 048
     Dates: start: 20180316

REACTIONS (9)
  - Anaemia [Not Recovered/Not Resolved]
  - Influenza [Unknown]
  - Dyspnoea [Not Recovered/Not Resolved]
  - Bronchitis [Unknown]
  - Intestinal haemorrhage [Not Recovered/Not Resolved]
  - Oxygen saturation decreased [Unknown]
  - Sinusitis [Unknown]
  - Heart rate increased [Unknown]
  - Tooth extraction [Unknown]

NARRATIVE: CASE EVENT DATE: 201909
